FAERS Safety Report 9591775 (Version 2)
Quarter: 2013Q4

REPORT INFORMATION
  Report Type: Spontaneous
  Country: US (occurrence: US)
  Receive Date: 20131004
  Receipt Date: 20131004
  Transmission Date: 20140711
  Serious: No
  Sender: FDA-Public Use
  Company Number: US-AMGEN-USASP2012082493

PATIENT
  Age: 47 Year
  Sex: Male

DRUGS (2)
  1. ENBREL [Suspect]
     Indication: RHEUMATOID ARTHRITIS
     Dosage: 50 MG, QWK
     Route: 058
     Dates: start: 20120809, end: 20121130
  2. SIMPONI [Concomitant]
     Dosage: UNK

REACTIONS (3)
  - Condition aggravated [Unknown]
  - Drug effect incomplete [Unknown]
  - Influenza [Recovered/Resolved]
